FAERS Safety Report 6253504-3 (Version None)
Quarter: 2009Q3

REPORT INFORMATION
  Report Type: 
  Country: None (occurrence: None)
  Receive Date: 20090701
  Receipt Date: 20090625
  Transmission Date: 20100115
  Serious: Yes (Hospitalization, Other)
  Sender: FDA-Public Use
  Company Number: US-AMGEN-QUU348020

PATIENT
  Sex: Female
  Weight: 59 kg

DRUGS (4)
  1. ENBREL [Suspect]
     Indication: ANKYLOSING SPONDYLITIS
     Route: 058
     Dates: start: 20040101
  2. FLOVENT [Concomitant]
  3. ACYCLOVIR [Concomitant]
  4. ALBUTEROL [Concomitant]

REACTIONS (3)
  - FOETAL HEART RATE ABNORMAL [None]
  - LABOUR COMPLICATION [None]
  - MATERNAL DRUGS AFFECTING FOETUS [None]
